FAERS Safety Report 18216568 (Version 1)
Quarter: 2020Q3

REPORT INFORMATION
  Report Type: Spontaneous
  Country: US (occurrence: US)
  Receive Date: 20200825
  Receipt Date: 20200825
  Transmission Date: 20201103
  Serious: No
  Sender: FDA-Public Use
  Company Number: None

PATIENT
  Age: 16 Year
  Sex: Male

DRUGS (1)
  1. VAPE PEN (MARIJUANA) [Suspect]
     Active Substance: CANNABIS SATIVA SUBSP. INDICA TOP\DEVICE
     Route: 055

REACTIONS (1)
  - Seizure [None]

NARRATIVE: CASE EVENT DATE: 20200417
